FAERS Safety Report 5250465-0 (Version None)
Quarter: 2007Q1

REPORT INFORMATION
  Report Type: 
  Country: None (occurrence: None)
  Receive Date: 20070228
  Receipt Date: 20060519
  Transmission Date: 20070707
  Serious: Yes (Life-Threatening, Hospitalization, Other)
  Sender: FDA-Public Use
  Company Number: US-GLAXOSMITHKLINE-A0602481A

PATIENT
  Age: 48 Year
  Sex: Female
  Weight: 69.1 kg

DRUGS (10)
  1. LAMICTAL [Suspect]
     Indication: BIPOLAR DISORDER
     Dosage: 5MG UNKNOWN
     Route: 048
     Dates: start: 20060329, end: 20060417
  2. NEURONTIN [Concomitant]
  3. ABILIFY [Concomitant]
     Dosage: 5MG IN THE MORNING
  4. AMBIEN [Concomitant]
     Dosage: 10MG AT NIGHT
  5. KLONOPIN [Concomitant]
     Dosage: .5MG THREE TIMES PER DAY
  6. TARKA [Concomitant]
     Dosage: 240MG PER DAY
  7. REMICADE [Concomitant]
  8. SULFA [Concomitant]
  9. PREMARIN [Concomitant]
     Dosage: .65MG PER DAY
  10. PROTONIX [Concomitant]
     Dosage: 40MG WEEKLY

REACTIONS (2)
  - MUSCLE SPASMS [None]
  - RHABDOMYOLYSIS [None]
